FAERS Safety Report 25618312 (Version 3)
Quarter: 2025Q4

REPORT INFORMATION
  Report Type: Spontaneous
  Country: US (occurrence: US)
  Receive Date: 20250729
  Receipt Date: 20251019
  Transmission Date: 20260119
  Serious: Yes (Other)
  Sender: SANOFI AVENTIS
  Company Number: US-SA-2025SA219207

PATIENT
  Age: 67 Year
  Sex: Female
  Weight: 102.73 kg

DRUGS (19)
  1. DUPIXENT [Suspect]
     Active Substance: DUPILUMAB
     Indication: Asthma
     Dosage: 300 MG, QOW
     Route: 058
  2. DUPIXENT [Suspect]
     Active Substance: DUPILUMAB
     Dosage: 300 MG, QOW
     Route: 048
  3. ELIQUIS [Concomitant]
     Active Substance: APIXABAN
  4. VESICARE [Concomitant]
     Active Substance: SOLIFENACIN SUCCINATE
     Dosage: UNK
  5. DILTIAZEM [Concomitant]
     Active Substance: DILTIAZEM
  6. ZYRTEC [Concomitant]
     Active Substance: CETIRIZINE HYDROCHLORIDE
  7. AIRSUPRA [Concomitant]
     Active Substance: ALBUTEROL SULFATE\BUDESONIDE
  8. DULERA [Concomitant]
     Active Substance: FORMOTEROL FUMARATE DIHYDRATE\MOMETASONE FUROATE
  9. METOPROLOL TARTRATE [Concomitant]
     Active Substance: METOPROLOL TARTRATE
  10. IVIZIA DRY EYE [Concomitant]
     Active Substance: POVIDONE
  11. MONTELUKAST SODIUM [Concomitant]
     Active Substance: MONTELUKAST SODIUM
  12. HYDROCHLOROTHIAZIDE [Concomitant]
     Active Substance: HYDROCHLOROTHIAZIDE
  13. TYLENOL [Concomitant]
     Active Substance: ACETAMINOPHEN
  14. DIGOXIN [Concomitant]
     Active Substance: DIGOXIN
  15. ATORVASTATIN CALCIUM [Concomitant]
     Active Substance: ATORVASTATIN CALCIUM
  16. ALPRAZOLAM [Concomitant]
     Active Substance: ALPRAZOLAM
  17. PROTONIX [Concomitant]
     Active Substance: PANTOPRAZOLE SODIUM
  18. FAMOTIDINE [Concomitant]
     Active Substance: FAMOTIDINE
  19. VITAMIN D3 [Concomitant]
     Active Substance: CHOLECALCIFEROL

REACTIONS (5)
  - Pulmonary fibrosis [Unknown]
  - Productive cough [Unknown]
  - Dry throat [Not Recovered/Not Resolved]
  - Incorrect route of product administration [Unknown]
  - Cardiac resynchronisation therapy [Unknown]

NARRATIVE: CASE EVENT DATE: 20250101
